FAERS Safety Report 15463914 (Version 10)
Quarter: 2019Q3

REPORT INFORMATION
  Report Type: Report from Study
  Country: JP (occurrence: JP)
  Receive Date: 20181004
  Receipt Date: 20190716
  Transmission Date: 20191004
  Serious: Yes (Hospitalization)
  Sender: FDA-Public Use
  Company Number: JP-EISAI MEDICAL RESEARCH-EC-2018-045635

PATIENT
  Age: 69 Year
  Sex: Female
  Weight: 43 kg

DRUGS (28)
  1. LENVATINIB [Suspect]
     Active Substance: LENVATINIB
     Route: 048
     Dates: start: 201906, end: 20190625
  2. NIVOLUMAB [Suspect]
     Active Substance: NIVOLUMAB
     Route: 041
     Dates: start: 201906, end: 20190612
  3. DEXALTIN [Concomitant]
     Active Substance: DEXAMETHASONE
  4. SPIRONOLACTONE. [Concomitant]
     Active Substance: SPIRONOLACTONE
  5. BROTIZOLAM [Concomitant]
     Active Substance: BROTIZOLAM
  6. ALOSENN [Concomitant]
  7. TSUMURA DAIKENCHUTO EXTRACT GRANULES FOR ETHICAL USE [Concomitant]
     Active Substance: HERBALS
  8. PREDNISOLONE. [Concomitant]
     Active Substance: PREDNISOLONE
  9. LENVATINIB [Suspect]
     Active Substance: LENVATINIB
     Route: 048
     Dates: start: 20190225, end: 20190507
  10. BARACLUDE [Concomitant]
     Active Substance: ENTECAVIR
  11. MAGNESIUM OXIDE. [Concomitant]
     Active Substance: MAGNESIUM OXIDE
  12. AMLODIPINE [Concomitant]
     Active Substance: AMLODIPINE BESYLATE
  13. HEPARINOID [Concomitant]
     Active Substance: CHONDROITIN SULFATE (BOVINE)
  14. THYRADIN S [Concomitant]
     Active Substance: LEVOTHYROXINE SODIUM
  15. LENVATINIB [Suspect]
     Active Substance: LENVATINIB
     Route: 048
     Dates: start: 20180928, end: 20190219
  16. TSUMURA SHAKUYAKUKANZOTO EXTRACT GRANULES FOR ETHICAL USE [Concomitant]
  17. CALONAL [Concomitant]
     Active Substance: ACETAMINOPHEN
  18. ATELEC [Concomitant]
     Active Substance: CILNIDIPINE
  19. GASCON [Concomitant]
     Active Substance: DIMETHICONE
  20. LENVATINIB [Suspect]
     Active Substance: LENVATINIB
     Indication: HEPATOCELLULAR CARCINOMA
     Route: 048
     Dates: start: 20180919, end: 20180926
  21. SODIUM RABEPRAZOLE [Concomitant]
     Active Substance: RABEPRAZOLE SODIUM
  22. TSUMURA RIKKUNSHITO EXTRACT GRANULES FOR ETHICAL USE [Concomitant]
     Active Substance: HERBALS
  23. LOCOID [Concomitant]
     Active Substance: HYDROCORTISONE BUTYRATE
  24. NIVOLUMAB [Suspect]
     Active Substance: NIVOLUMAB
     Indication: HEPATOCELLULAR CARCINOMA
     Route: 041
     Dates: start: 20180919, end: 20190507
  25. PL [Concomitant]
     Active Substance: ACETAMINOPHEN\CAFFEINE\PROMETHAZINE\SALICYLAMIDE
  26. AZULENE [Concomitant]
     Active Substance: AZULENE
  27. DIACORT CREAM [Concomitant]
  28. VENA PASTA [Concomitant]

REACTIONS (4)
  - Depressed level of consciousness [Recovered/Resolved]
  - Oedema [Recovered/Resolved]
  - Portal vein thrombosis [Recovering/Resolving]
  - Hyperammonaemia [Recovered/Resolved]

NARRATIVE: CASE EVENT DATE: 20180925
